FAERS Safety Report 10144458 (Version 1)
Quarter: 2014Q2

REPORT INFORMATION
  Report Type: Spontaneous
  Country: US (occurrence: US)
  Receive Date: 20140430
  Receipt Date: 20140430
  Transmission Date: 20141212
  Serious: No
  Sender: FDA-Public Use
  Company Number: US-LUNDBECK-DKLU1093475

PATIENT
  Age: 7 Year
  Sex: Male

DRUGS (3)
  1. SABRIL     (TABLET) [Suspect]
     Indication: INFANTILE SPASMS
     Route: 048
     Dates: start: 20100319
  2. SABRIL     (TABLET) [Suspect]
     Indication: INFANTILE SPASMS
  3. SABRIL     (TABLET) [Suspect]
     Indication: CHROMOSOMAL DELETION

REACTIONS (1)
  - Drug dose omission [Unknown]
